FAERS Safety Report 6446744-1 (Version None)
Quarter: 2009Q4

REPORT INFORMATION
  Report Type: 
  Country: None (occurrence: None)
  Receive Date: 20091119
  Receipt Date: 20091112
  Transmission Date: 20100525
  Serious: Yes (Other)
  Sender: FDA-Public Use
  Company Number: US-JNJFOC-20091104724

PATIENT
  Sex: Male
  Weight: 70.31 kg

DRUGS (15)
  1. DURAGESIC-100 [Suspect]
     Route: 062
  2. DURAGESIC-100 [Suspect]
     Route: 062
  3. DURAGESIC-100 [Suspect]
     Indication: PAIN IN EXTREMITY
     Route: 062
  4. ARTHROTEC [Concomitant]
     Indication: ANTIINFLAMMATORY THERAPY
     Route: 048
  5. SIMVASTATIN [Concomitant]
     Indication: BLOOD CHOLESTEROL INCREASED
     Route: 048
  6. ATENOLOL [Concomitant]
     Indication: HYPERTENSION
     Route: 048
  7. VALSARTAN [Concomitant]
     Indication: HYPERTENSION
     Route: 048
  8. ASPIRIN [Concomitant]
     Indication: CARDIAC DISORDER
     Route: 048
  9. CARISOPRODOL [Concomitant]
     Indication: MYALGIA
     Route: 048
  10. ADVAIR DISKUS 100/50 [Concomitant]
     Indication: ASTHMA
     Dosage: 500/50 1 PUFF
     Route: 055
  11. ALBUTEROL [Concomitant]
     Indication: ASTHMA
     Dosage: 1 PUFF
     Route: 055
  12. FLUTICASONE [Concomitant]
     Indication: ASTHMA
     Route: 045
  13. IRON [Concomitant]
     Indication: MEDICAL DIET
     Route: 048
  14. VITAMIN [Concomitant]
     Indication: MEDICAL DIET
     Route: 048
  15. POTASSIUM CHLORIDE [Concomitant]
     Indication: MEDICAL DIET
     Route: 048

REACTIONS (5)
  - DIZZINESS [None]
  - DRUG INEFFECTIVE [None]
  - HALLUCINATION [None]
  - TREATMENT NONCOMPLIANCE [None]
  - WITHDRAWAL SYNDROME [None]
